FAERS Safety Report 9409283 (Version 1)
Quarter: 2013Q2

REPORT INFORMATION
  Report Type: Spontaneous
  Country: RU (occurrence: None)
  Receive Date: 20130410
  Receipt Date: 20130410
  Transmission Date: 20140414
  Serious: Yes (Hospitalization)
  Sender: FDA-Public Use
  Company Number: 2012SA093069

PATIENT
  Age: 75 Year
  Sex: Male

DRUGS (6)
  1. PLAVIX [Suspect]
     Indication: THROMBOSIS PROPHYLAXIS
     Route: 048
     Dates: start: 201112
  2. THROMBO ASS [Suspect]
     Route: 048
     Dates: end: 201302
  3. ATORVASTATIN (ATORVASTATIN) [Suspect]
     Route: 048
     Dates: end: 201302
  4. PRESTARIUM [Concomitant]
  5. CORDARONE [Concomitant]
  6. METOPROLOL [Concomitant]

REACTIONS (6)
  - Pain [None]
  - Hypoaesthesia [None]
  - Conduction disorder [None]
  - Lumbar hernia [None]
  - Demyelinating polyneuropathy [None]
  - Sciatica [None]
